FAERS Safety Report 9188025 (Version 1)
Quarter: 2013Q1

REPORT INFORMATION
  Report Type: Spontaneous
  Country: US (occurrence: US)
  Receive Date: 20130325
  Receipt Date: 20130325
  Transmission Date: 20140127
  Serious: No
  Sender: FDA-Public Use
  Company Number: US-MYLANLABS-2012S1025619

PATIENT
  Age: 52 Year
  Sex: Male

DRUGS (11)
  1. FENTANYL TRANSDERMAL SYSTEM [Suspect]
     Indication: NECK PAIN
     Dosage: CHANGED Q48H
     Route: 062
     Dates: end: 20121205
  2. FENTANYL TRANSDERMAL SYSTEM [Suspect]
     Indication: BONE PAIN
     Dosage: CHANGED Q48H
     Route: 062
     Dates: end: 20121205
  3. FENTANYL TRANSDERMAL SYSTEM [Suspect]
     Indication: PAIN
     Dosage: CHANGED Q48H
     Route: 062
     Dates: end: 20121205
  4. FENTANYL TRANSDERMAL SYSTEM [Suspect]
     Indication: NECK PAIN
     Dosage: CHANGED Q48H
     Route: 062
     Dates: end: 20121205
  5. FENTANYL TRANSDERMAL SYSTEM [Suspect]
     Indication: BONE PAIN
     Dosage: CHANGED Q48H
     Route: 062
     Dates: end: 20121205
  6. FENTANYL TRANSDERMAL SYSTEM [Suspect]
     Indication: PAIN
     Dosage: CHANGED Q48H
     Route: 062
     Dates: end: 20121205
  7. OPANA [Suspect]
     Indication: NECK PAIN
     Route: 048
     Dates: start: 20121205
  8. OPANA [Suspect]
     Indication: BONE PAIN
     Route: 048
     Dates: start: 20121205
  9. OPANA [Suspect]
     Indication: PAIN
     Route: 048
     Dates: start: 20121205
  10. ALPRAZOLAM [Concomitant]
     Indication: ANXIETY
     Dosage: FOR ANXIETY AND SLEEP
  11. LISINOPRIL [Concomitant]
     Indication: BLOOD PRESSURE INCREASED

REACTIONS (3)
  - Drug withdrawal syndrome [Not Recovered/Not Resolved]
  - Disturbance in attention [Not Recovered/Not Resolved]
  - Insomnia [Not Recovered/Not Resolved]
